FAERS Safety Report 10962290 (Version 1)
Quarter: 2015Q1

REPORT INFORMATION
  Report Type: Spontaneous
  Country: JP (occurrence: JP)
  Receive Date: 20150327
  Receipt Date: 20150327
  Transmission Date: 20150721
  Serious: Yes (Death, Other)
  Sender: FDA-Public Use
  Company Number: JP-009507513-1503JPN010280

PATIENT
  Age: 90 Year
  Sex: Female
  Weight: 42 kg

DRUGS (7)
  1. NU-LOTAN [Concomitant]
     Active Substance: LOSARTAN POTASSIUM
     Indication: HYPERTENSION
     Dosage: 25 MG, QD
     Route: 048
     Dates: start: 20150121
  2. ACECOL [Concomitant]
     Active Substance: TEMOCAPRIL HYDROCHLORIDE
     Indication: HYPERTENSION
     Dosage: 2 MG, BID
     Route: 048
     Dates: start: 20150121
  3. CANCIDAS [Suspect]
     Active Substance: CASPOFUNGIN ACETATE
     Indication: URINARY TRACT INFECTION
     Dosage: 50 MG, QD
     Route: 041
     Dates: start: 20150122, end: 20150207
  4. CANCIDAS [Suspect]
     Active Substance: CASPOFUNGIN ACETATE
     Indication: URINARY TRACT INFECTION
     Dosage: 70 MG, QD
     Route: 041
     Dates: start: 20150112, end: 20150121
  5. KINEDAK [Concomitant]
     Active Substance: EPALRESTAT
     Indication: DIABETES MELLITUS
     Dosage: 50 MG, TID
     Route: 048
     Dates: start: 20150121
  6. EBRANTIL [Concomitant]
     Active Substance: URAPIDIL
     Indication: DYSURIA
     Dosage: 30 MG, QD
     Route: 048
     Dates: start: 20150112
  7. NOVOLIN R [Concomitant]
     Active Substance: INSULIN HUMAN
     Indication: DIABETES MELLITUS
     Dosage: 10 UNDER1000 UNIT 3 TIMES DAILY
     Route: 058
     Dates: start: 20150121

REACTIONS (3)
  - Cerebral haemorrhage [Fatal]
  - Respiratory failure [Fatal]
  - Marasmus [Fatal]

NARRATIVE: CASE EVENT DATE: 20150207
